FAERS Safety Report 9036494 (Version 1)
Quarter: 2013Q1

REPORT INFORMATION
  Report Type: Spontaneous
  Country: US (occurrence: None)
  Receive Date: 20130122
  Receipt Date: 20130122
  Transmission Date: 20140127
  Serious: Yes (Other)
  Sender: FDA-Public Use
  Company Number: None

PATIENT
  Age: 39 Year
  Sex: Female
  Weight: 58.97 kg

DRUGS (1)
  1. LAMOTRIGINE [Suspect]
     Indication: DEPRESSION
     Dates: start: 20130106, end: 20130114

REACTIONS (7)
  - Irritability [None]
  - Product substitution issue [None]
  - Anxiety [None]
  - Insomnia [None]
  - Aggression [None]
  - Crying [None]
  - Drug ineffective [None]
